FAERS Safety Report 7040987-4 (Version None)
Quarter: 2010Q4

REPORT INFORMATION
  Report Type: 
  Country: None (occurrence: None)
  Receive Date: 20101007
  Receipt Date: 20100930
  Transmission Date: 20110411
  Serious: Yes (Other)
  Sender: FDA-Public Use
  Company Number: 2010SP052378

PATIENT
  Age: 37 Year
  Sex: Female
  Weight: 103 kg

DRUGS (1)
  1. ORMIGREIN (ORMIGREIN /01755201/) [Suspect]
     Indication: MIGRAINE
     Dosage: ; QD; PO
     Route: 048
     Dates: start: 20000101, end: 20100923

REACTIONS (4)
  - ABDOMINAL PAIN UPPER [None]
  - DRUG DEPENDENCE [None]
  - MALAISE [None]
  - OVERDOSE [None]
